FAERS Safety Report 25637290 (Version 1)
Quarter: 2025Q3

REPORT INFORMATION
  Report Type: Spontaneous
  Country: IN (occurrence: IN)
  Receive Date: 20250804
  Receipt Date: 20250804
  Transmission Date: 20251020
  Serious: Yes (Hospitalization, Other)
  Sender: STRIDES
  Company Number: IN-STRIDES ARCOLAB LIMITED-2025SP009644

PATIENT
  Age: 59 Year
  Sex: Female

DRUGS (2)
  1. METHOTREXATE [Suspect]
     Active Substance: METHOTREXATE
     Indication: Rheumatoid arthritis
     Route: 048
  2. METHOTREXATE [Suspect]
     Active Substance: METHOTREXATE
     Route: 048

REACTIONS (9)
  - Febrile neutropenia [Unknown]
  - Pancytopenia [Unknown]
  - Skin ulcer [Unknown]
  - Overdose [Unknown]
  - Toxicity to various agents [Unknown]
  - Product knowledge deficit [Unknown]
  - Off label use [Unknown]
  - Unintentional use for unapproved indication [Unknown]
  - Product administration error [Unknown]
